FAERS Safety Report 7261570-1 (Version None)
Quarter: 2011Q1

REPORT INFORMATION
  Report Type: 
  Country: None (occurrence: None)
  Receive Date: 20110130
  Receipt Date: 20100922
  Transmission Date: 20110831
  Serious: No
  Sender: FDA-Public Use
  Company Number: US-ABBOTT-10P-163-0672698-00

PATIENT
  Age: 18 Year
  Sex: Male

DRUGS (4)
  1. HUMIRA [Suspect]
     Indication: CROHN'S DISEASE
     Dates: start: 20100801
  2. OMEPRAZOLE [Concomitant]
     Indication: GASTROOESOPHAGEAL REFLUX DISEASE
  3. DAYQUIL [Concomitant]
     Indication: HEADACHE
  4. TYLENOL-500 [Concomitant]
     Indication: HEADACHE

REACTIONS (4)
  - HEADACHE [None]
  - RHINORRHOEA [None]
  - SPUTUM DISCOLOURED [None]
  - NASAL CONGESTION [None]
